FAERS Safety Report 10370393 (Version 1)
Quarter: 2014Q3

REPORT INFORMATION
  Report Type: Spontaneous
  Country: US (occurrence: None)
  Receive Date: 20140807
  Receipt Date: 20140807
  Transmission Date: 20150326
  Serious: No
  Sender: FDA-Public Use
  Company Number: None

PATIENT
  Age: 64 Year
  Sex: Male
  Weight: 99 kg

DRUGS (3)
  1. TEMSULOSIN [Concomitant]
  2. BICALUTAMIDE. [Suspect]
     Active Substance: BICALUTAMIDE
     Dates: start: 20140721, end: 20140731
  3. ZOLADEX [Suspect]
     Active Substance: GOSERELIN ACETATE
     Dates: start: 20140527

REACTIONS (5)
  - Chest pain [None]
  - Back pain [None]
  - Pulmonary embolism [None]
  - Dyspnoea [None]
  - Sinus bradycardia [None]

NARRATIVE: CASE EVENT DATE: 20140721
